FAERS Safety Report 14671335 (Version 1)
Quarter: 2018Q1

REPORT INFORMATION
  Report Type: Report from Study
  Country: BR (occurrence: BR)
  Receive Date: 20180323
  Receipt Date: 20180323
  Transmission Date: 20180509
  Serious: Yes (Other)
  Sender: FDA-Public Use
  Company Number: BR-UCBSA-2018011818

PATIENT
  Age: 34 Year
  Sex: Female
  Weight: 59 kg

DRUGS (2)
  1. AZATHIOPRINE. [Concomitant]
     Active Substance: AZATHIOPRINE
     Indication: CROHN^S DISEASE
     Dosage: UNK
     Route: 048
     Dates: start: 2014
  2. CERTOLIZUMAB PEGOL [Suspect]
     Active Substance: CERTOLIZUMAB PEGOL
     Indication: CROHN^S DISEASE
     Dosage: 400 MG, EV 4 WEEKS
     Dates: start: 2017

REACTIONS (1)
  - Cyst [Recovered/Resolved]

NARRATIVE: CASE EVENT DATE: 201801
